FAERS Safety Report 7074023-0 (Version None)
Quarter: 2010Q4

REPORT INFORMATION
  Report Type: 
  Country: None (occurrence: None)
  Receive Date: 20101029
  Receipt Date: 20101019
  Transmission Date: 20110411
  Serious: Yes (Hospitalization, Disabling, Other)
  Sender: FDA-Public Use
  Company Number: US-ROCHE-423639

PATIENT
  Sex: Female
  Weight: 61.2 kg

DRUGS (3)
  1. ACCUTANE [Suspect]
     Route: 048
     Dates: start: 19900201, end: 19900802
  2. ACCUTANE [Suspect]
     Route: 048
     Dates: start: 19970101
  3. DEMULEN 1/35-21 [Concomitant]
     Dates: start: 19850101, end: 19900801

REACTIONS (15)
  - AUTOIMMUNE THYROIDITIS [None]
  - BLINDNESS TRANSIENT [None]
  - CAROTID ARTERY STENOSIS [None]
  - COLITIS [None]
  - CROHN'S DISEASE [None]
  - CYST [None]
  - EUSTACHIAN TUBE DYSFUNCTION [None]
  - FACIAL SPASM [None]
  - GASTROINTESTINAL DISORDER [None]
  - GASTROOESOPHAGEAL REFLUX DISEASE [None]
  - INFLAMMATORY BOWEL DISEASE [None]
  - INTESTINAL HAEMORRHAGE [None]
  - IRRITABLE BOWEL SYNDROME [None]
  - RAYNAUD'S PHENOMENON [None]
  - SJOGREN'S SYNDROME [None]
